FAERS Safety Report 5795088-X (Version None)
Quarter: 2008Q2

REPORT INFORMATION
  Report Type: 
  Country: None (occurrence: None)
  Receive Date: 20080627
  Receipt Date: 20080627
  Transmission Date: 20081010
  Serious: Yes (Hospitalization)
  Sender: FDA-Public Use
  Company Number: None

PATIENT
  Sex: Female
  Weight: 57.1 kg

DRUGS (2)
  1. CISPLATIN 119 MG [Suspect]
     Dates: end: 20080401
  2. GEMICITABINE HYDROCHLORIDE 1908 MG [Suspect]
     Dosage: 1908 MG
     Dates: end: 20080401

REACTIONS (10)
  - ANAEMIA [None]
  - CEREBRAL HAEMORRHAGE [None]
  - ESCHERICHIA URINARY TRACT INFECTION [None]
  - HAEMORRHAGIC STROKE [None]
  - HYPONATRAEMIA [None]
  - INAPPROPRIATE ANTIDIURETIC HORMONE SECRETION [None]
  - THROMBOCYTOPENIA [None]
  - URINARY RETENTION [None]
  - WALKING AID USER [None]
  - WHITE BLOOD CELL COUNT INCREASED [None]
